FAERS Safety Report 5793133-9 (Version None)
Quarter: 2008Q2

REPORT INFORMATION
  Report Type: 
  Country: None (occurrence: None)
  Receive Date: 20080627
  Receipt Date: 20080408
  Transmission Date: 20081010
  Serious: Yes (Hospitalization)
  Sender: FDA-Public Use
  Company Number: A0721613A

PATIENT
  Sex: Female

DRUGS (1)
  1. FLOVENT [Suspect]
     Indication: ASTHMA
     Dosage: 4PUFF PER DAY
     Route: 055

REACTIONS (1)
  - DRUG INEFFECTIVE [None]
